FAERS Safety Report 5012377-7 (Version None)
Quarter: 2006Q2

REPORT INFORMATION
  Report Type: 
  Country: None (occurrence: None)
  Receive Date: 20060414
  Receipt Date: 20060221
  Transmission Date: 20061013
  Serious: No
  Sender: FDA-Public Use
  Company Number: 2006SP000874

PATIENT
  Age: 88 Year
  Sex: Male
  Weight: 71.5549 kg

DRUGS (9)
  1. LUNESTA [Suspect]
     Indication: INSOMNIA
     Dosage: 1 MG;HS;ORAL
     Route: 048
     Dates: start: 20060220
  2. CALAN [Concomitant]
  3. CLONIDINE [Concomitant]
  4. LANOXIN [Concomitant]
  5. SYNTHROID [Concomitant]
  6. WARFARIN [Concomitant]
  7. HYZAAR [Concomitant]
  8. ATORVASTATIN CALCIUM [Concomitant]
  9. COZAAR [Concomitant]

REACTIONS (3)
  - DYSGEUSIA [None]
  - HYPERTENSION [None]
  - TREMOR [None]
